FAERS Safety Report 4496424-7 (Version None)
Quarter: 2004Q4

REPORT INFORMATION
  Report Type: 
  Country: None (occurrence: None)
  Receive Date: 20041109
  Receipt Date: 20041102
  Transmission Date: 20050328
  Serious: Yes (Death)
  Sender: FDA-Public Use
  Company Number: US-JNJFOC-20040908723

PATIENT
  Age: 44 Year
  Sex: Female

DRUGS (14)
  1. TOPAMAX [Suspect]
     Indication: DRUG USE FOR UNKNOWN INDICATION
     Route: 049
  2. IMIPRAM TAB [Suspect]
     Indication: DRUG USE FOR UNKNOWN INDICATION
     Route: 049
  3. VERAPAMIL [Suspect]
     Indication: DRUG USE FOR UNKNOWN INDICATION
     Route: 049
  4. ACYCLOVIR [Concomitant]
  5. CETIRIZINE HCL [Concomitant]
  6. BUDESONIDE [Concomitant]
  7. LANSOPRAZOLE [Concomitant]
  8. FLUOXETINE [Concomitant]
  9. MONTELUKAST [Concomitant]
  10. OLANZAPINE [Concomitant]
  11. FOLATE [Concomitant]
  12. TRIFLUOPERAZINE HCL [Concomitant]
  13. ETHINYL ESTRADIOL/NORETHINDRONE ACETATE [Concomitant]
  14. ALPRAZOLAM [Concomitant]

REACTIONS (10)
  - AGITATION [None]
  - CARDIAC ARREST [None]
  - COMA [None]
  - COMPLETED SUICIDE [None]
  - CONVULSION [None]
  - MULTIPLE DRUG OVERDOSE INTENTIONAL [None]
  - PCO2 DECREASED [None]
  - PO2 INCREASED [None]
  - TORSADE DE POINTES [None]
  - VENTRICULAR TACHYCARDIA [None]
